FAERS Safety Report 13842143 (Version 2)
Quarter: 2017Q3

REPORT INFORMATION
  Report Type: Spontaneous
  Country: BR (occurrence: BR)
  Receive Date: 20170807
  Receipt Date: 20170904
  Transmission Date: 20171127
  Serious: Yes (Death, Hospitalization, Other)
  Sender: FDA-Public Use
  Company Number: BR-AMGEN-BRASP2017116962

PATIENT
  Age: 42 Year
  Sex: Female
  Weight: 62 kg

DRUGS (1)
  1. NEULASTIM [Suspect]
     Active Substance: PEGFILGRASTIM
     Indication: PRODUCT USED FOR UNKNOWN INDICATION
     Dosage: 6 MG, SINGLE DOSE
     Route: 058
     Dates: start: 20170601, end: 20170601

REACTIONS (11)
  - Device related infection [Unknown]
  - Thrombocytopenia [Not Recovered/Not Resolved]
  - Shock [Fatal]
  - Haemorrhage [Not Recovered/Not Resolved]
  - Multiple organ dysfunction syndrome [Fatal]
  - Non-Hodgkin^s lymphoma recurrent [Not Recovered/Not Resolved]
  - Sepsis [Unknown]
  - Pancytopenia [Unknown]
  - Staphylococcus test positive [Unknown]
  - Neutropenia [Not Recovered/Not Resolved]
  - Febrile neutropenia [Unknown]

NARRATIVE: CASE EVENT DATE: 2017
